FAERS Safety Report 24736585 (Version 2)
Quarter: 2024Q4

REPORT INFORMATION
  Report Type: Spontaneous
  Country: IT (occurrence: IT)
  Receive Date: 20241216
  Receipt Date: 20241219
  Transmission Date: 20250115
  Serious: Yes (Hospitalization, Other)
  Sender: AUROBINDO
  Company Number: IT-DOCGEN-2405081

PATIENT
  Age: 25 Year
  Sex: Male

DRUGS (4)
  1. CLOZAPINE [Suspect]
     Active Substance: CLOZAPINE
     Indication: Schizophrenia
     Dosage: 200 MILLIGRAM, ONCE A DAY
     Route: 048
  2. CLOZAPINE [Suspect]
     Active Substance: CLOZAPINE
     Dosage: 200 MILLIGRAM, ONCE A DAY
     Route: 048
     Dates: start: 202209
  3. LURASIDONE [Concomitant]
     Active Substance: LURASIDONE
     Indication: Schizophrenia
     Dosage: 37 MILLIGRAM, ONCE A DAY
     Route: 065
  4. LURASIDONE [Concomitant]
     Active Substance: LURASIDONE
     Dosage: 148 MILLIGRAM, ONCE A DAY
     Route: 065

REACTIONS (7)
  - Hallucination, auditory [Recovering/Resolving]
  - Social avoidant behaviour [Recovering/Resolving]
  - Apathy [Recovering/Resolving]
  - Abulia [Recovering/Resolving]
  - Anhedonia [Recovering/Resolving]
  - Therapy non-responder [Recovering/Resolving]
  - Drug resistance [Unknown]
